FAERS Safety Report 5203057-3 (Version None)
Quarter: 2006Q4

REPORT INFORMATION
  Report Type: 
  Country: None (occurrence: None)
  Receive Date: 20061016
  Receipt Date: 20060810
  Transmission Date: 20070319
  Serious: Yes (Other)
  Sender: FDA-Public Use
  Company Number: 2006097974

PATIENT
  Age: 31 Year
  Sex: Male
  Weight: 61.2356 kg

DRUGS (23)
  1. NEURONTIN [Suspect]
     Indication: APRAXIA
     Dosage: (1 IN 6 HR)
     Dates: start: 20050101
  2. NEURONTIN [Suspect]
     Indication: BALANCE DISORDER
     Dosage: (1 IN 6 HR)
     Dates: start: 20050101
  3. NEURONTIN [Suspect]
     Indication: CONVULSION
     Dosage: (1 IN 6 HR)
     Dates: start: 20050101
  4. NEURONTIN [Suspect]
     Indication: COORDINATION ABNORMAL
     Dosage: (1 IN 6 HR)
     Dates: start: 20050101
  5. NEURONTIN [Suspect]
     Indication: ILL-DEFINED DISORDER
     Dosage: (1 IN 6 HR)
     Dates: start: 20050101
  6. NEURONTIN [Suspect]
     Indication: MOVEMENT DISORDER
     Dosage: (1 IN 6 HR)
     Dates: start: 20050101
  7. NEURONTIN [Suspect]
     Indication: MUSCLE SPASMS
     Dosage: (1 IN 6 HR)
     Dates: start: 20050101
  8. GABAPENTIN [Suspect]
     Indication: APRAXIA
  9. GABAPENTIN [Suspect]
     Indication: BALANCE DISORDER
  10. GABAPENTIN [Suspect]
     Indication: CONVULSION
  11. GABAPENTIN [Suspect]
     Indication: COORDINATION ABNORMAL
  12. GABAPENTIN [Suspect]
     Indication: ILL-DEFINED DISORDER
  13. GABAPENTIN [Suspect]
     Indication: MOVEMENT DISORDER
  14. GABAPENTIN [Suspect]
     Indication: MUSCLE SPASMS
  15. REQUIP [Concomitant]
  16. ATIVAN [Concomitant]
  17. MIDODRINE HYDROCHLORIDE [Concomitant]
  18. FLORINEF [Concomitant]
  19. FLEXERIL [Concomitant]
  20. NAMENDA [Concomitant]
  21. ARICEPT [Concomitant]
  22. ATENOLOL [Concomitant]
  23. ALL OTHER THERAPEUTIC PRODUCTS (ALL  OTHER THERAPEUTIC PRODUCTS) [Concomitant]

REACTIONS (6)
  - APRAXIA [None]
  - CONVULSION [None]
  - COORDINATION ABNORMAL [None]
  - DRUG EFFECT DECREASED [None]
  - MUSCLE SPASMS [None]
  - WEIGHT INCREASED [None]
